FAERS Safety Report 21286510 (Version 1)
Quarter: 2022Q3

REPORT INFORMATION
  Report Type: Spontaneous
  Country: US (occurrence: US)
  Receive Date: 20220902
  Receipt Date: 20220902
  Transmission Date: 20221027
  Serious: Yes (Other)
  Sender: FDA-Public Use
  Company Number: US-SA-SAC20220830000542

PATIENT

DRUGS (2)
  1. ZANTAC [Suspect]
     Active Substance: RANITIDINE HYDROCHLORIDE
     Dosage: PRESCRIPTION: OVER THE COUNTER
     Route: 065
     Dates: start: 1994, end: 2000
  2. RANITIDINE HYDROCHLORIDE [Suspect]
     Active Substance: RANITIDINE HYDROCHLORIDE
     Dosage: PRESCRIPTION: OVER THE COUNTER
     Route: 065
     Dates: start: 1994, end: 2020

REACTIONS (1)
  - Breast cancer [Unknown]
